FAERS Safety Report 4575254-1 (Version None)
Quarter: 2005Q1

REPORT INFORMATION
  Report Type: 
  Country: None (occurrence: None)
  Receive Date: 20050118
  Receipt Date: 20040726
  Transmission Date: 20050727
  Serious: Yes (Other)
  Sender: FDA-Public Use
  Company Number: HQWYE580129JUL04

PATIENT
  Age: 70 Year
  Sex: Female
  Weight: 71.73 kg

DRUGS (1)
  1. PREMPRO [Suspect]
     Indication: HORMONE REPLACEMENT THERAPY
     Dates: start: 19000101, end: 20000101

REACTIONS (1)
  - BREAST CANCER [None]
